FAERS Safety Report 7653515-7 (Version None)
Quarter: 2011Q3

REPORT INFORMATION
  Report Type: 
  Country: None (occurrence: None)
  Receive Date: 20110803
  Receipt Date: 20110727
  Transmission Date: 20111222
  Serious: Yes (Hospitalization, Other)
  Sender: FDA-Public Use
  Company Number: US-BAYER-201037884NA

PATIENT
  Age: 42 Year
  Sex: Female
  Weight: 85.714 kg

DRUGS (11)
  1. LORTAB [Concomitant]
  2. ACETAMINOPHEN [Concomitant]
  3. YASMIN [Suspect]
     Indication: CONTRACEPTION
     Dosage: UNK UNK, UNK
     Route: 048
     Dates: start: 20060201, end: 20080901
  4. CYCLOBENZAPRINE [Concomitant]
     Dosage: 10 MG, UNK
  5. IBUPROFEN [Concomitant]
     Indication: PAIN
     Dosage: 400 MG, QID
  6. AMBIEN [Concomitant]
  7. PLAQUENIL [Concomitant]
     Indication: SCLERODERMA
     Dosage: 200 MG, QD
     Route: 048
  8. PERCOCET [Concomitant]
  9. ONDANSETRON [Concomitant]
  10. HYDROXYZINE [Concomitant]
     Dosage: 25 MG, UNK
  11. ROXICODONE [Concomitant]

REACTIONS (3)
  - GALLBLADDER INJURY [None]
  - CHOLECYSTITIS CHRONIC [None]
  - CHOLELITHIASIS [None]
